FAERS Safety Report 6011449-8 (Version None)
Quarter: 2008Q4

REPORT INFORMATION
  Report Type: 
  Country: None (occurrence: None)
  Receive Date: 20081218
  Receipt Date: 20020523
  Transmission Date: 20090506
  Serious: Yes (Death, Other)
  Sender: FDA-Public Use
  Company Number: IE-ROCHE-313825

PATIENT
  Sex: Male

DRUGS (1)
  1. LARIAM [Suspect]
     Indication: MALARIA PROPHYLAXIS
     Route: 065
     Dates: start: 20020601

REACTIONS (5)
  - COMPLETED SUICIDE [None]
  - FEAR [None]
  - MOOD ALTERED [None]
  - PARANOIA [None]
  - PERSECUTORY DELUSION [None]
